FAERS Safety Report 17484624 (Version 1)
Quarter: 2020Q1

REPORT INFORMATION
  Report Type: Spontaneous
  Country: DZ (occurrence: DZ)
  Receive Date: 20200302
  Receipt Date: 20200302
  Transmission Date: 20200409
  Serious: Yes (Death, Other)
  Sender: FDA-Public Use
  Company Number: DZ-BIOMARINAP-DZ-2020-128763

PATIENT
  Age: 6 Year
  Sex: Male
  Weight: 20 kg

DRUGS (1)
  1. ALDURAZYME [Suspect]
     Active Substance: LARONIDASE
     Indication: MUCOPOLYSACCHARIDOSIS I
     Dosage: 100 INTERNATIONAL UNIT
     Route: 042
     Dates: start: 2018, end: 202001

REACTIONS (3)
  - Nervous system disorder [Unknown]
  - Meningitis bacterial [Fatal]
  - Pyrexia [Unknown]
